FAERS Safety Report 23797960 (Version 1)
Quarter: 2024Q2

REPORT INFORMATION
  Report Type: Spontaneous
  Country: US (occurrence: US)
  Receive Date: 20240430
  Receipt Date: 20240430
  Transmission Date: 20240715
  Serious: Yes (Hospitalization)
  Sender: FDA-Public Use
  Company Number: US-AUROBINDO-AUR-APL-2024-018998

PATIENT
  Age: 71 Year
  Sex: Female

DRUGS (3)
  1. AMITRIPTYLINE HYDROCHLORIDE [Interacting]
     Active Substance: AMITRIPTYLINE HYDROCHLORIDE
     Indication: Depression
     Dosage: 200 MILLIGRAM, TWO TIMES A DAY
     Route: 065
  2. DILTIAZEM [Interacting]
     Active Substance: DILTIAZEM
     Indication: Hypertension
     Dosage: UNK
     Route: 065
  3. CIMETIDINE [Interacting]
     Active Substance: CIMETIDINE
     Indication: Gastrooesophageal reflux disease
     Dosage: UNK
     Route: 065

REACTIONS (6)
  - Confusional state [Unknown]
  - Hypotension [Unknown]
  - Stupor [Unknown]
  - Tachycardia [Recovered/Resolved]
  - Toxicity to various agents [Unknown]
  - Drug interaction [Unknown]
